FAERS Safety Report 8381990-1 (Version None)
Quarter: 2012Q2

REPORT INFORMATION
  Report Type: 
  Country: None (occurrence: None)
  Receive Date: 20120524
  Receipt Date: 20120511
  Transmission Date: 20120825
  Serious: Yes (Hospitalization)
  Sender: FDA-Public Use
  Company Number: FR-JNJFOC-20120106371

PATIENT
  Sex: Male

DRUGS (10)
  1. ACETAMINOPHEN [Interacting]
     Indication: PAIN
     Route: 048
     Dates: end: 20111223
  2. SCOPOLAMINE [Interacting]
     Indication: PRODUCT USED FOR UNKNOWN INDICATION
     Route: 062
  3. LEVOTHYROXINE SODIUM [Concomitant]
     Indication: PRODUCT USED FOR UNKNOWN INDICATION
     Route: 048
  4. NORMACOL LAVEMENT [Concomitant]
     Indication: CONSTIPATION
     Route: 054
     Dates: start: 20111219
  5. AMOXICILINE + CLAVULANIC ACID [Concomitant]
     Indication: LUNG DISORDER
     Route: 048
     Dates: start: 20111219, end: 20111226
  6. DURAGESIC-100 [Suspect]
     Indication: PRODUCT USED FOR UNKNOWN INDICATION
     Dosage: REPORTED  AS 0, 5 DOSE PER DAY
     Route: 062
  7. NEXIUM [Concomitant]
     Indication: GASTRIC ULCER
     Route: 048
  8. ESCITALOPRAM [Concomitant]
     Indication: PRODUCT USED FOR UNKNOWN INDICATION
     Route: 048
  9. MORPHINE SULFATE [Interacting]
     Indication: PRODUCT USED FOR UNKNOWN INDICATION
     Route: 048
     Dates: end: 20111223
  10. POLYETHYLENE GLYCOL [Concomitant]
     Indication: CONSTIPATION
     Route: 048

REACTIONS (3)
  - CONSTIPATION [None]
  - DRUG INTERACTION [None]
  - OLIGURIA [None]
